FAERS Safety Report 11864673 (Version 1)
Quarter: 2015Q4

REPORT INFORMATION
  Report Type: Report from Study
  Country: DE (occurrence: DE)
  Receive Date: 20151223
  Receipt Date: 20151223
  Transmission Date: 20160305
  Serious: Yes (Hospitalization)
  Sender: FDA-Public Use
  Company Number: DE-BAYER-2015-488677

PATIENT
  Age: 80 Year
  Sex: Female

DRUGS (19)
  1. TORASEMID [Concomitant]
     Active Substance: TORSEMIDE
     Dosage: 5 MG, QD
     Dates: start: 20150715, end: 20151127
  2. MCP [Concomitant]
     Active Substance: METOCLOPRAMIDE HYDROCHLORIDE
     Dosage: UNK
     Dates: start: 20150218, end: 20151127
  3. NOVAMINSULFON [Concomitant]
     Active Substance: METAMIZOLE
     Dosage: 30-30-30
     Dates: start: 20151206
  4. ASPIRIN. [Concomitant]
     Active Substance: ASPIRIN
     Dosage: 100 MG, QD
     Dates: end: 20151127
  5. CALCILAC [Concomitant]
     Active Substance: CALCIUM CARBONATE
     Dosage: UNK
     Dates: start: 20150804, end: 20151127
  6. LYRICA [Concomitant]
     Active Substance: PREGABALIN
     Dosage: 100 MG, QD
     Dates: start: 20150608, end: 20151127
  7. CARVEDILOL. [Concomitant]
     Active Substance: CARVEDILOL
     Dosage: 12.5 MG, QD
     Dates: start: 20150608, end: 20151127
  8. KALINOR [POTASSIUM CHLORIDE] [Concomitant]
     Indication: HYPOKALAEMIA
     Dosage: 2 U, QD
     Dates: start: 20151204, end: 20151206
  9. MUCOFALK [Concomitant]
     Dosage: UNK
     Dates: start: 20150710, end: 20151127
  10. NOVAMINSULFON [Concomitant]
     Active Substance: METAMIZOLE
     Dosage: 1500 MG, QD
     Dates: start: 20150711, end: 20151127
  11. RAMIPRIL. [Concomitant]
     Active Substance: RAMIPRIL
     Dosage: 5 MG, QD
     Dates: start: 20150715, end: 20151127
  12. SORAFENIB (RAF KINASE INHIBITOR) [Suspect]
     Active Substance: SORAFENIB
     Indication: METASTATIC RENAL CELL CARCINOMA
     Dosage: 400 MG, QD
     Dates: start: 20151110, end: 20151127
  13. PAZOPANIB [Suspect]
     Active Substance: PAZOPANIB
     Indication: METASTATIC RENAL CELL CARCINOMA
     Dosage: DAILY DOSE 600 MG
     Dates: start: 20150127, end: 20150526
  14. MST-1 [Concomitant]
     Dosage: 20 MG, QD
     Dates: start: 20150715, end: 20151127
  15. DEXAMETASON [Concomitant]
     Active Substance: DEXAMETHASONE
     Dosage: 2 MG, QD
     Dates: start: 20150722, end: 20151127
  16. L-THYROXIN [Concomitant]
     Active Substance: LEVOTHYROXINE SODIUM
     Dosage: 25 ?G, QD
     Dates: start: 20150818, end: 20151127
  17. SORAFENIB (RAF KINASE INHIBITOR) [Suspect]
     Active Substance: SORAFENIB
     Indication: METASTATIC RENAL CELL CARCINOMA
     Dosage: 400 MG, QD
     Dates: start: 20150624, end: 20151103
  18. PANTOPRAZOLE [Concomitant]
     Active Substance: PANTOPRAZOLE SODIUM
     Dosage: 40 MG, QD
     Dates: start: 20150205, end: 20151127
  19. KALINOR [POTASSIUM CHLORIDE] [Concomitant]
     Indication: HYPOKALAEMIA
     Dosage: UNK
     Dates: start: 20150225, end: 20151127

REACTIONS (1)
  - Ischaemic stroke [Recovered/Resolved with Sequelae]

NARRATIVE: CASE EVENT DATE: 20151127
